FAERS Safety Report 16803134 (Version 1)
Quarter: 2019Q3

REPORT INFORMATION
  Report Type: Spontaneous
  Country: US (occurrence: US)
  Receive Date: 20190913
  Receipt Date: 20190913
  Transmission Date: 20191005
  Serious: No
  Sender: FDA-Public Use
  Company Number: US-ASTRAZENECA-2019SF26973

PATIENT
  Age: 59 Year
  Sex: Female
  Weight: 116.1 kg

DRUGS (10)
  1. LYRICA [Suspect]
     Active Substance: PREGABALIN
     Indication: NEUROPATHY PERIPHERAL
     Route: 048
  2. LYRICA [Suspect]
     Active Substance: PREGABALIN
     Indication: BACK PAIN
     Route: 048
  3. MELOXICAM. [Concomitant]
     Active Substance: MELOXICAM
     Indication: ARTHRITIS
     Dosage: 15 MG 1 TABLET ONCE A DAY
     Route: 048
  4. OMEPRAZOLE. [Suspect]
     Active Substance: OMEPRAZOLE
     Indication: GASTROOESOPHAGEAL REFLUX DISEASE
     Route: 048
  5. OXYCODONE [Suspect]
     Active Substance: OXYCODONE
     Indication: PAIN
     Dosage: 50,MG 1 TABLET THREE TIMES A DAY AS NEEDED
     Route: 048
  6. TIZANIDINE. [Concomitant]
     Active Substance: TIZANIDINE
     Indication: MUSCLE SPASMS
     Dosage: 4 MG, 1 TABLET THREE A DAY,
     Route: 048
  7. LISINOPRIL. [Suspect]
     Active Substance: LISINOPRIL
     Indication: HYPERTENSION
     Dosage: 20 MG ONE TABLET ORALLY
     Route: 048
  8. LYRICA [Suspect]
     Active Substance: PREGABALIN
     Indication: FIBROMYALGIA
     Route: 048
  9. LYRICA [Suspect]
     Active Substance: PREGABALIN
     Indication: POST-TRAUMATIC NEURALGIA
     Route: 048
  10. FLUOXETINE [Concomitant]
     Active Substance: FLUOXETINE HYDROCHLORIDE
     Indication: DEPRESSION
     Dosage: 20 MG 1 CAPSULE DAILY
     Route: 048

REACTIONS (10)
  - Movement disorder [Unknown]
  - Gait inability [Unknown]
  - Depression [Unknown]
  - Back pain [Unknown]
  - Neuropathy peripheral [Unknown]
  - Hypertension [Unknown]
  - Muscle spasms [Unknown]
  - Arthritis [Unknown]
  - Product dose omission [Unknown]
  - Gastrooesophageal reflux disease [Unknown]
